FAERS Safety Report 5058111-6 (Version None)
Quarter: 2006Q3

REPORT INFORMATION
  Report Type: 
  Country: None (occurrence: None)
  Receive Date: 20060721
  Receipt Date: 20050419
  Transmission Date: 20061208
  Serious: Yes (Hospitalization)
  Sender: FDA-Public Use
  Company Number: JP-GLAXOSMITHKLINE-B0378531A

PATIENT
  Age: 8 Year
  Sex: Male
  Weight: 23 kg

DRUGS (34)
  1. ALKERAN [Suspect]
     Indication: ALLOGENIC BONE MARROW TRANSPLANTATION THERAPY
     Dosage: 70MGM2 PER DAY
     Route: 042
     Dates: start: 20040823, end: 20040824
  2. FLUDARABINE PHOSPHATE [Concomitant]
     Indication: ALLOGENIC BONE MARROW TRANSPLANTATION THERAPY
     Route: 042
     Dates: start: 20040820, end: 20040824
  3. NEUTROGIN [Concomitant]
     Dates: start: 20040901, end: 20040913
  4. NEU-UP [Concomitant]
     Route: 042
     Dates: start: 20040914, end: 20040915
  5. TACROLIMUS HYDRATE [Concomitant]
     Indication: IMMUNOSUPPRESSION
     Route: 065
     Dates: start: 20040825
  6. METHOTREXATE [Concomitant]
     Indication: IMMUNOSUPPRESSION
     Route: 065
     Dates: start: 20040827
  7. METHOTREXATE [Concomitant]
     Route: 065
     Dates: start: 20040829
  8. METHOTREXATE [Concomitant]
     Route: 065
     Dates: start: 20040831
  9. PREDNISOLONE [Concomitant]
     Indication: IMMUNOSUPPRESSION
     Route: 065
     Dates: start: 20041115
  10. BAKTAR [Concomitant]
     Route: 048
     Dates: start: 20040914
  11. POLYMYXIN B SULFATE [Concomitant]
     Route: 048
     Dates: start: 20040820, end: 20040902
  12. DIFLUCAN [Concomitant]
     Indication: FUNGAL INFECTION
     Route: 048
     Dates: start: 20040820, end: 20040830
  13. ZOVIRAX [Concomitant]
     Indication: HERPES VIRUS INFECTION
     Route: 048
     Dates: start: 20040819, end: 20041008
  14. ZOVIRAX [Concomitant]
     Route: 048
     Dates: start: 20041016
  15. URSO [Concomitant]
     Indication: VENOOCCLUSIVE LIVER DISEASE
     Route: 048
     Dates: start: 20040820, end: 20040902
  16. MORPHINE [Concomitant]
     Indication: PAIN
     Dates: start: 20040907, end: 20040921
  17. PENTAZOCINE LACTATE [Concomitant]
     Indication: PAIN
     Dates: start: 20040829, end: 20040902
  18. ATARAX [Concomitant]
     Indication: PAIN
     Dates: start: 20040827, end: 20041008
  19. BROACT [Concomitant]
     Indication: FEBRILE NEUTROPENIA
     Route: 042
     Dates: start: 20040831, end: 20040906
  20. BROACT [Concomitant]
     Route: 042
     Dates: start: 20040930, end: 20041008
  21. BROACT [Concomitant]
     Route: 042
     Dates: start: 20041108, end: 20041115
  22. AMPICILLIN [Concomitant]
     Route: 042
     Dates: start: 20040831, end: 20040913
  23. MINOCYCLINE HCL [Concomitant]
     Indication: FEBRILE NEUTROPENIA
     Route: 042
     Dates: start: 20040903, end: 20040913
  24. MEROPEN [Concomitant]
     Indication: FEBRILE NEUTROPENIA
     Route: 042
     Dates: start: 20040906, end: 20040913
  25. ADENOSINE [Concomitant]
     Route: 042
     Dates: start: 20040928, end: 20041013
  26. ADENOSINE [Concomitant]
     Route: 042
     Dates: start: 20041124, end: 20041207
  27. ZOVIRAX [Concomitant]
     Route: 042
     Dates: start: 20041009, end: 20041015
  28. CHLOR-TRIMETON [Concomitant]
     Indication: HYPERSENSITIVITY
     Dates: start: 20040825, end: 20041122
  29. SOLU-MEDROL [Concomitant]
     Indication: HYPERSENSITIVITY
     Dates: start: 20040829, end: 20040916
  30. ROPION [Concomitant]
     Indication: ANTIPYRESIS
     Route: 042
     Dates: start: 20040901, end: 20040912
  31. KYTRIL [Concomitant]
     Indication: VOMITING
     Dates: start: 20040820, end: 20040831
  32. VENOGLOBULIN [Concomitant]
     Indication: SECONDARY IMMUNODEFICIENCY
     Route: 042
     Dates: start: 20040825, end: 20041009
  33. LEPETAN [Concomitant]
     Indication: PAIN
     Route: 030
     Dates: start: 20040902, end: 20040906
  34. CONTOMIN [Concomitant]
     Indication: INSOMNIA
     Route: 030
     Dates: start: 20040922, end: 20041008

REACTIONS (5)
  - ABDOMINAL PAIN [None]
  - DIARRHOEA [None]
  - FEBRILE NEUTROPENIA [None]
  - HAEMATOCHEZIA [None]
  - MUCOUS MEMBRANE DISORDER [None]
